FAERS Safety Report 21273421 (Version 1)
Quarter: 2022Q3

REPORT INFORMATION
  Report Type: Spontaneous
  Country: US (occurrence: None)
  Receive Date: 20220830
  Receipt Date: 20220830
  Transmission Date: 20221027
  Serious: Yes (Hospitalization)
  Sender: FDA-Public Use
  Company Number: None

PATIENT
  Sex: Male

DRUGS (1)
  1. PROCRIT [Suspect]
     Active Substance: ERYTHROPOIETIN
     Indication: Myelodysplastic syndrome
     Dosage: OTHER QUANTITY : 40,000 UNITS;?FREQUENCY : WEEKLY;?
     Route: 058
     Dates: start: 20220622

REACTIONS (4)
  - Haemoglobin decreased [None]
  - Fatigue [None]
  - Somnolence [None]
  - Asthenia [None]
